FAERS Safety Report 11376337 (Version 1)
Quarter: 2015Q3

REPORT INFORMATION
  Report Type: Spontaneous
  Country: US (occurrence: US)
  Receive Date: 20150813
  Receipt Date: 20150813
  Transmission Date: 20151125
  Serious: No
  Sender: FDA-Public Use
  Company Number: US-PFIZER INC-2015266076

PATIENT

DRUGS (1)
  1. PREMARIN [Suspect]
     Active Substance: ESTROGENS, CONJUGATED
     Dosage: UNK

REACTIONS (6)
  - Irritability [Unknown]
  - Insomnia [Unknown]
  - Feeling hot [Unknown]
  - Mood altered [Unknown]
  - Drug hypersensitivity [Unknown]
  - Erythema multiforme [Unknown]
